FAERS Safety Report 14992359 (Version 1)
Quarter: 2018Q2

REPORT INFORMATION
  Report Type: Spontaneous
  Country: DE (occurrence: DE)
  Receive Date: 20180609
  Receipt Date: 20180609
  Transmission Date: 20180711
  Serious: Yes (Hospitalization)
  Sender: FDA-Public Use
  Company Number: DE-TEVA-2018-DE-903120

PATIENT
  Age: 90 Year
  Sex: Female

DRUGS (6)
  1. TAMOXIFEN [Suspect]
     Active Substance: TAMOXIFEN
     Dosage: 0-0-1-0,
     Route: 048
  2. OLANZAPINE. [Suspect]
     Active Substance: OLANZAPINE
     Dosage: 0-0-0.5-0,
     Route: 048
  3. FENTANYL. [Concomitant]
     Active Substance: FENTANYL
     Dosage: 12 MICROGRAM DAILY;  PATTERN,
     Route: 062
  4. QUENSYL [Suspect]
     Active Substance: HYDROXYCHLOROQUINE
     Dosage: 0-0-1-0
     Route: 048
  5. PREDNISOLON [Concomitant]
     Active Substance: PREDNISOLONE
     Dosage: 2-0-0-0
     Route: 048
  6. PANTOPRAZOL [Concomitant]
     Active Substance: PANTOPRAZOLE SODIUM
     Dosage: 1-0-0-0
     Route: 048

REACTIONS (5)
  - Pyrexia [Unknown]
  - Agranulocytosis [Unknown]
  - Dysuria [Unknown]
  - Confusional state [Unknown]
  - General physical health deterioration [Unknown]
